FAERS Safety Report 24268552 (Version 1)
Quarter: 2024Q3

REPORT INFORMATION
  Report Type: Spontaneous
  Country: PT (occurrence: PT)
  Receive Date: 20240830
  Receipt Date: 20240830
  Transmission Date: 20241016
  Serious: Yes (Life-Threatening, Hospitalization, Disabling)
  Sender: EISAI
  Company Number: None

PATIENT
  Age: 66 Year
  Sex: Female

DRUGS (1)
  1. LENVIMA [Suspect]
     Active Substance: LENVATINIB
     Indication: Lung neoplasm malignant
     Dosage: 20MG
     Route: 048
     Dates: start: 20240805, end: 20240813

REACTIONS (4)
  - Dysphagia [Recovering/Resolving]
  - Dyskinesia [Recovering/Resolving]
  - Mucosal inflammation [Recovering/Resolving]
  - Dry mouth [Recovering/Resolving]

NARRATIVE: CASE EVENT DATE: 20240805
